FAERS Safety Report 9685662 (Version 1)
Quarter: 2013Q4

REPORT INFORMATION
  Report Type: Spontaneous
  Country: US (occurrence: US)
  Receive Date: 20131113
  Receipt Date: 20131113
  Transmission Date: 20140711
  Serious: No
  Sender: FDA-Public Use
  Company Number: US-TEVA-443966USA

PATIENT
  Sex: Female

DRUGS (1)
  1. PARAGARD 380A [Suspect]
     Indication: CONTRACEPTION
     Route: 015

REACTIONS (7)
  - Muscle spasms [Unknown]
  - Menorrhagia [Unknown]
  - Menorrhagia [Unknown]
  - Loss of libido [Unknown]
  - Acne [Unknown]
  - Scar [Not Recovered/Not Resolved]
  - Crying [Unknown]
